FAERS Safety Report 14366872 (Version 2)
Quarter: 2018Q1

REPORT INFORMATION
  Report Type: Spontaneous
  Country: JP (occurrence: JP)
  Receive Date: 20180109
  Receipt Date: 20180118
  Transmission Date: 20180509
  Serious: Yes (Hospitalization, Other)
  Sender: FDA-Public Use
  Company Number: JP-PFIZER INC-2018007058

PATIENT
  Age: 71 Year
  Sex: Female

DRUGS (2)
  1. CARBOPLATIN. [Suspect]
     Active Substance: CARBOPLATIN
     Indication: OVARIAN CANCER RECURRENT
     Dosage: 550 MG/M2, CYCLIC (FIVE COURSES AT 3 WEEK INTERVALS, RECEIVED HER FINAL COURSE TWO WEEKS EARLIER)
  2. PACLITAXEL. [Suspect]
     Active Substance: PACLITAXEL
     Indication: OVARIAN CANCER RECURRENT
     Dosage: 270 MG/M2, CYCLIC (FIVE COURSES AT 3-WEEK INTERVALS, RECEIVED HER FINAL COURSE TWO WEEKS EARLIER)

REACTIONS (4)
  - Immunosuppression [Unknown]
  - Mycobacterium avium complex infection [Unknown]
  - Lung disorder [Unknown]
  - Lower respiratory tract infection bacterial [Unknown]
